FAERS Safety Report 6170358-4 (Version None)
Quarter: 2009Q2

REPORT INFORMATION
  Report Type: 
  Country: None (occurrence: None)
  Receive Date: 20090427
  Receipt Date: 20090427
  Transmission Date: 20091009
  Serious: Yes (Death)
  Sender: FDA-Public Use
  Company Number: None

PATIENT
  Age: 72 Year
  Sex: Female
  Weight: 49.8957 kg

DRUGS (2)
  1. DIAMOX SRC [Suspect]
     Indication: EYE HAEMORRHAGE
     Dosage: 1 CAPSULE 2X DAY ORAL
     Route: 048
     Dates: start: 20080905
  2. DIAMOX SRC [Suspect]
     Indication: EYE HAEMORRHAGE
     Dosage: 1 CAPSULE 2X DAY ORAL
     Route: 048
     Dates: start: 20080928

REACTIONS (2)
  - ASTHENIA [None]
  - LETHARGY [None]
